FAERS Safety Report 19377676 (Version 1)
Quarter: 2021Q2

REPORT INFORMATION
  Report Type: Spontaneous
  Country: US (occurrence: US)
  Receive Date: 20210604
  Receipt Date: 20210604
  Transmission Date: 20210717
  Serious: No
  Sender: FDA-Public Use
  Company Number: US-REGENERON PHARMACEUTICALS, INC.-2020-96334

PATIENT

DRUGS (2)
  1. LIBTAYO [Suspect]
     Active Substance: CEMIPLIMAB-RWLC
     Indication: SQUAMOUS CELL CARCINOMA OF SKIN
     Dosage: UNK
     Dates: start: 201807
  2. LIBTAYO [Suspect]
     Active Substance: CEMIPLIMAB-RWLC
     Dosage: EVERY 13 WEEKS
     Dates: start: 20201208, end: 20201208

REACTIONS (6)
  - Xerosis [Unknown]
  - Constipation [Unknown]
  - Adverse drug reaction [Unknown]
  - Pruritus [Unknown]
  - Thermohyperaesthesia [Unknown]
  - Rash [Unknown]
